FAERS Safety Report 5379047-7 (Version None)
Quarter: 2007Q3

REPORT INFORMATION
  Report Type: 
  Country: None (occurrence: None)
  Receive Date: 20070705
  Receipt Date: 20070625
  Transmission Date: 20080115
  Serious: Yes (Death, Hospitalization)
  Sender: FDA-Public Use
  Company Number: GB-ROCHE-501831

PATIENT
  Age: 62 Year
  Sex: Female

DRUGS (5)
  1. XELODA [Suspect]
     Indication: BREAST CANCER
     Dosage: DOSE REPORTED AS 1800MG BD X14/7
     Route: 048
     Dates: start: 20070403, end: 20070603
  2. LITHIUM CARBONATE [Suspect]
     Route: 048
     Dates: end: 20070519
  3. OLANZAPINE [Concomitant]
     Route: 048
     Dates: end: 20070603
  4. VENLAFAXINE HCL [Concomitant]
     Route: 048
     Dates: end: 20070603
  5. CARBOPLATIN [Concomitant]
     Indication: BREAST CANCER
     Route: 042
     Dates: start: 20061201, end: 20070401

REACTIONS (2)
  - HYPERNATRAEMIA [None]
  - TOXIC ENCEPHALOPATHY [None]
